FAERS Safety Report 14425609 (Version 2)
Quarter: 2018Q1

REPORT INFORMATION
  Report Type: Report from Study
  Country: LB (occurrence: LB)
  Receive Date: 20180123
  Receipt Date: 20180208
  Transmission Date: 20180509
  Serious: Yes (Hospitalization)
  Sender: FDA-Public Use
  Company Number: US-ASTRAZENECA-2018SE09108

PATIENT
  Age: 2 Month
  Sex: Female
  Weight: 5 kg

DRUGS (2)
  1. SYNAGIS [Suspect]
     Active Substance: PALIVIZUMAB
     Indication: CARDIOMYOPATHY
     Dosage: 50.0MG UNKNOWN
     Route: 030
     Dates: start: 20171206, end: 20171206
  2. SYNAGIS [Suspect]
     Active Substance: PALIVIZUMAB
     Indication: CARDIOMYOPATHY
     Dosage: 75.0MG UNKNOWN
     Route: 030
     Dates: start: 20180109, end: 20180109

REACTIONS (3)
  - Influenza [Recovered/Resolved]
  - Cyanosis [Recovered/Resolved]
  - Respiratory syncytial virus infection [Recovered/Resolved]

NARRATIVE: CASE EVENT DATE: 20180111
